FAERS Safety Report 11673882 (Version 1)
Quarter: 2015Q4

REPORT INFORMATION
  Report Type: Spontaneous
  Country: GB (occurrence: GB)
  Receive Date: 20151028
  Receipt Date: 20151028
  Transmission Date: 20160304
  Serious: Yes (Other)
  Sender: FDA-Public Use
  Company Number: GB-WATSON-2015-22976

PATIENT
  Age: 61 Year
  Sex: Female

DRUGS (3)
  1. LIDOCAINE (UNKNOWN) [Suspect]
     Active Substance: LIDOCAINE
     Indication: NERVE BLOCK
     Dosage: UNK
     Route: 062
  2. BUPIVACAINE (UNKNOWN) [Suspect]
     Active Substance: BUPIVACAINE
     Indication: NERVE BLOCK
     Dosage: UNK
     Route: 062
  3. HYALURONIDASE [Suspect]
     Active Substance: HYALURONIDASE
     Indication: NERVE BLOCK
     Dosage: 7 ML, SINGLE
     Route: 062

REACTIONS (2)
  - VIIth nerve paralysis [Recovered/Resolved]
  - Trigeminal palsy [Recovered/Resolved]
